FAERS Safety Report 6180117-4 (Version None)
Quarter: 2009Q2

REPORT INFORMATION
  Report Type: 
  Country: None (occurrence: None)
  Receive Date: 20090505
  Receipt Date: 20090428
  Transmission Date: 20091009
  Serious: Yes (Other)
  Sender: FDA-Public Use
  Company Number: FR-GILEAD-2009-0021717

PATIENT
  Sex: Female

DRUGS (3)
  1. TRUVADA [Suspect]
     Route: 064
     Dates: start: 20081007
  2. COMBIVIR [Suspect]
     Route: 064
     Dates: start: 20080814, end: 20081007
  3. KALETRA [Suspect]
     Route: 064
     Dates: start: 20080814, end: 20090213

REACTIONS (2)
  - FOETAL ARRHYTHMIA [None]
  - FOETAL GROWTH RETARDATION [None]
